FAERS Safety Report 24289300 (Version 1)
Quarter: 2024Q3

REPORT INFORMATION
  Report Type: Spontaneous
  Country: PL (occurrence: PL)
  Receive Date: 20240906
  Receipt Date: 20240906
  Transmission Date: 20241017
  Serious: Yes (Hospitalization)
  Sender: ROCHE
  Company Number: PL-ROCHE-10000068557

PATIENT
  Age: 77 Year
  Sex: Female

DRUGS (1)
  1. LUNSUMIO [Suspect]
     Active Substance: MOSUNETUZUMAB-AXGB
     Indication: Product used for unknown indication
     Route: 065

REACTIONS (3)
  - Staphylococcal infection [Unknown]
  - Skin exfoliation [Recovering/Resolving]
  - Skin necrosis [Recovering/Resolving]
